FAERS Safety Report 8202238-4 (Version None)
Quarter: 2012Q1

REPORT INFORMATION
  Report Type: 
  Country: None (occurrence: None)
  Receive Date: 20120308
  Receipt Date: 20120221
  Transmission Date: 20120608
  Serious: Yes (Other)
  Sender: FDA-Public Use
  Company Number: 2012P1007595

PATIENT
  Age: 71 Year
  Sex: Male

DRUGS (4)
  1. SERTRALINE HYDROCHLORIDE [Concomitant]
  2. CLOTIAZEPAM [Concomitant]
  3. AMIODARONE HCL [Suspect]
     Indication: SUICIDE ATTEMPT
     Dosage: 4 GM;X1;PO 11.4 GM;X1;PO
     Route: 048
  4. PHENOBARBITAL TAB [Suspect]
     Indication: SUICIDE ATTEMPT

REACTIONS (2)
  - TOXICITY TO VARIOUS AGENTS [None]
  - INCORRECT DOSE ADMINISTERED [None]
